FAERS Safety Report 8832185 (Version 4)
Quarter: 2015Q1

REPORT INFORMATION
  Report Type: Spontaneous
  Country: US (occurrence: US)
  Receive Date: 20121009
  Receipt Date: 20150113
  Transmission Date: 20150721
  Serious: Yes (Disabling, Other)
  Sender: FDA-Public Use
  Company Number: US-009507513-1210USA002662

PATIENT
  Sex: Female
  Weight: 74.38 kg

DRUGS (5)
  1. FOSAMAX [Suspect]
     Active Substance: ALENDRONATE SODIUM
     Dosage: UNK
     Route: 048
     Dates: start: 2003, end: 2011
  2. BONIVA [Suspect]
     Active Substance: IBANDRONATE SODIUM
     Dosage: 150 MG, Q MONTH
     Route: 048
     Dates: start: 2003, end: 2011
  3. FOSAMAX [Suspect]
     Active Substance: ALENDRONATE SODIUM
     Dosage: 70 MG, QW
     Route: 048
     Dates: start: 2003, end: 2011
  4. FOSAMAX PLUS D [Suspect]
     Active Substance: ALENDRONATE SODIUM\CHOLECALCIFEROL
     Dosage: UNK
     Route: 048
     Dates: start: 2003, end: 2011
  5. ACTONEL [Suspect]
     Active Substance: RISEDRONATE SODIUM
     Dosage: UNK
     Route: 048
     Dates: start: 2003, end: 2011

REACTIONS (26)
  - Upper limb fracture [Unknown]
  - Depression [Not Recovered/Not Resolved]
  - Vulvovaginal dryness [Unknown]
  - Tumour excision [Unknown]
  - Open reduction of fracture [Unknown]
  - Femur fracture [Unknown]
  - Ligament sprain [Unknown]
  - Supraventricular tachycardia [Unknown]
  - Atrophy [Unknown]
  - Anxiety [Not Recovered/Not Resolved]
  - Type V hyperlipidaemia [Unknown]
  - Drug hypersensitivity [Unknown]
  - Gastrointestinal tract irritation [Unknown]
  - Fall [Unknown]
  - Macrocytosis [Unknown]
  - Dyspareunia [Unknown]
  - Throat irritation [Unknown]
  - Upper respiratory tract infection [Unknown]
  - Type 2 diabetes mellitus [Unknown]
  - Heart rate irregular [Unknown]
  - Back pain [Unknown]
  - Arthralgia [Unknown]
  - Vitamin D deficiency [Unknown]
  - Pneumonia [Unknown]
  - Adverse event [Unknown]
  - Treatment noncompliance [Unknown]

NARRATIVE: CASE EVENT DATE: 2003
